FAERS Safety Report 8391759-X (Version None)
Quarter: 2012Q2

REPORT INFORMATION
  Report Type: 
  Country: None (occurrence: None)
  Receive Date: 20120529
  Receipt Date: 20120528
  Transmission Date: 20120825
  Serious: Yes (Disabling)
  Sender: FDA-Public Use
  Company Number: CA-ROCHE-613571

PATIENT
  Sex: Male
  Weight: 83 kg

DRUGS (5)
  1. AVASTIN [Suspect]
     Indication: COLON CANCER METASTATIC
     Dosage: FORM: INFUSION
     Route: 042
     Dates: start: 20080602, end: 20090202
  2. FLUOROURACIL [Concomitant]
     Indication: COLON CANCER
     Dosage: DRUG GIVEN AS IV PUSH; FORM: INFUSION
     Route: 042
     Dates: start: 20080520, end: 20090202
  3. FLUOROURACIL [Concomitant]
     Dosage: DRUG GIVEN AS CIV OVER 46 HOURS
     Route: 042
     Dates: start: 20080520, end: 20090202
  4. IRINOTECAN HCL [Concomitant]
     Indication: COLON CANCER
     Dosage: FORM: INFUSION
     Route: 042
     Dates: start: 20080520, end: 20090202
  5. LEUCOVORIN CALCIUM [Concomitant]
     Indication: COLON CANCER
     Dosage: FORM: INFUSION
     Route: 042
     Dates: start: 20080520, end: 20090202

REACTIONS (3)
  - LOOSE TOOTH [None]
  - TOOTH LOSS [None]
  - DECREASED APPETITE [None]
